FAERS Safety Report 21412390 (Version 1)
Quarter: 2022Q4

REPORT INFORMATION
  Report Type: Spontaneous
  Country: US (occurrence: US)
  Receive Date: 20221005
  Receipt Date: 20221005
  Transmission Date: 20230113
  Serious: Yes (Other)
  Sender: FDA-Public Use
  Company Number: US-INTRA-CELLULAR THERAPIES, INC.-2022ICT01017

PATIENT
  Sex: Male

DRUGS (2)
  1. CAPLYTA [Suspect]
     Active Substance: LUMATEPERONE
     Dosage: 42 MG
  2. DILANTIN [Suspect]
     Active Substance: PHENYTOIN

REACTIONS (3)
  - Seizure [Unknown]
  - Convulsive threshold lowered [Recovered/Resolved]
  - Labelled drug-drug interaction medication error [Recovered/Resolved]
